FAERS Safety Report 6830741-8 (Version None)
Quarter: 2010Q3

REPORT INFORMATION
  Report Type: 
  Country: None (occurrence: None)
  Receive Date: 20100712
  Receipt Date: 20100629
  Transmission Date: 20110219
  Serious: Yes (Other)
  Sender: FDA-Public Use
  Company Number: GB-ELI_LILLY_AND_COMPANY-GB201007000503

PATIENT
  Sex: Female

DRUGS (2)
  1. BYETTA [Suspect]
     Dosage: UNK, UNKNOWN
  2. BYETTA [Suspect]
     Dosage: 10 UG, UNKNOWN

REACTIONS (3)
  - FATIGUE [None]
  - PAIN IN EXTREMITY [None]
  - RASH MACULAR [None]
